FAERS Safety Report 14340447 (Version 1)
Quarter: 2018Q1

REPORT INFORMATION
  Report Type: Spontaneous
  Country: CA (occurrence: CA)
  Receive Date: 20180101
  Receipt Date: 20180101
  Transmission Date: 20180509
  Serious: Yes (Other)
  Sender: FDA-Public Use
  Company Number: CA-CONCORDIA PHARMACEUTICALS INC.-GSH201712-006723

PATIENT
  Age: 60 Year
  Sex: Female

DRUGS (29)
  1. PLAQUENIL [Suspect]
     Active Substance: HYDROXYCHLOROQUINE SULFATE
     Indication: PRODUCT USED FOR UNKNOWN INDICATION
     Route: 048
  2. ARAVA [Suspect]
     Active Substance: LEFLUNOMIDE
     Indication: PRODUCT USED FOR UNKNOWN INDICATION
     Route: 048
     Dates: start: 200306, end: 200406
  3. METRONIDAZOLE. [Concomitant]
     Active Substance: METRONIDAZOLE
  4. DILAUDID [Concomitant]
     Active Substance: HYDROMORPHONE HYDROCHLORIDE
  5. HYDROMORPH [Concomitant]
     Active Substance: HYDROMORPHONE
  6. JANUVIA [Concomitant]
     Active Substance: SITAGLIPTIN PHOSPHATE
  7. TRIAMCINOLONE [Concomitant]
     Active Substance: TRIAMCINOLONE
  8. ENBREL [Suspect]
     Active Substance: ETANERCEPT
     Indication: PRODUCT USED FOR UNKNOWN INDICATION
     Route: 065
  9. HUMIRA [Suspect]
     Active Substance: ADALIMUMAB
     Indication: PRODUCT USED FOR UNKNOWN INDICATION
     Route: 058
     Dates: start: 200508, end: 201602
  10. SALBUTAMOL [Concomitant]
     Active Substance: ALBUTEROL
  11. NITROGLYCERIN. [Concomitant]
     Active Substance: NITROGLYCERIN
  12. CALCIUM [Concomitant]
     Active Substance: CALCIUM
  13. ACIDOPHILUS [Concomitant]
     Active Substance: LACTOBACILLUS ACIDOPHILUS
  14. KENALOG [Concomitant]
     Active Substance: TRIAMCINOLONE ACETONIDE
  15. METHOTREXATE. [Suspect]
     Active Substance: METHOTREXATE
     Indication: RHEUMATOID ARTHRITIS
     Route: 065
     Dates: end: 201502
  16. PREDNISONE. [Suspect]
     Active Substance: PREDNISONE
     Indication: PRODUCT USED FOR UNKNOWN INDICATION
     Route: 065
  17. DEFLAZACORT [Concomitant]
     Active Substance: DEFLAZACORT
  18. CRESTOR [Concomitant]
     Active Substance: ROSUVASTATIN CALCIUM
  19. PANTOLOC [Concomitant]
     Active Substance: PANTOPRAZOLE SODIUM
  20. ASPIRIN. [Concomitant]
     Active Substance: ASPIRIN
  21. LIDOCAINE. [Concomitant]
     Active Substance: LIDOCAINE
  22. VITAMIN D [Concomitant]
     Active Substance: CHOLECALCIFEROL
  23. REMICADE [Suspect]
     Active Substance: INFLIXIMAB
     Indication: PRODUCT USED FOR UNKNOWN INDICATION
     Route: 065
     Dates: start: 200006, end: 200206
  24. XELJANZ [Concomitant]
     Active Substance: TOFACITINIB CITRATE
     Dates: start: 20170717
  25. PREGABALIN. [Concomitant]
     Active Substance: PREGABALIN
  26. TYLENOL [Concomitant]
     Active Substance: ACETAMINOPHEN
  27. RISEDRONATE [Concomitant]
     Active Substance: RISEDRONATE SODIUM
  28. SULFASALAZINE. [Suspect]
     Active Substance: SULFASALAZINE
     Indication: RHEUMATOID ARTHRITIS
     Route: 065
  29. AZATHIOPRINE. [Suspect]
     Active Substance: AZATHIOPRINE
     Indication: PRODUCT USED FOR UNKNOWN INDICATION
     Route: 065

REACTIONS (16)
  - Rheumatoid arthritis [Not Recovered/Not Resolved]
  - Bronchiectasis [Unknown]
  - Skin ulcer [Unknown]
  - Peripheral vascular disorder [Unknown]
  - Osteoporosis [Unknown]
  - Staphylococcal infection [Unknown]
  - Bursitis infective [Recovered/Resolved]
  - Skin discolouration [Unknown]
  - Localised infection [Recovering/Resolving]
  - Respiratory tract infection [Unknown]
  - Pneumonia [Unknown]
  - Leg amputation [Unknown]
  - Infection [Unknown]
  - Drug effect incomplete [Unknown]
  - Crying [Unknown]
  - Inflammation [Unknown]

NARRATIVE: CASE EVENT DATE: 20170713
